FAERS Safety Report 5324557-1 (Version None)
Quarter: 2007Q2

REPORT INFORMATION
  Report Type: 
  Country: None (occurrence: None)
  Receive Date: 20070514
  Receipt Date: 20070502
  Transmission Date: 20071010
  Serious: Yes (Other)
  Sender: FDA-Public Use
  Company Number: US-PFIZER INC-2007036492

PATIENT
  Sex: Female

DRUGS (2)
  1. NEURONTIN [Suspect]
     Indication: NERVE INJURY
     Route: 048
  2. NEURONTIN [Suspect]
     Dosage: DAILY DOSE:300MG-FREQ:DAILY
     Route: 048

REACTIONS (4)
  - DIABETES MELLITUS [None]
  - HEPATOCELLULAR DAMAGE [None]
  - HYPERTENSION [None]
  - SUICIDAL IDEATION [None]
